FAERS Safety Report 7319823-4 (Version None)
Quarter: 2011Q1

REPORT INFORMATION
  Report Type: 
  Country: None (occurrence: None)
  Receive Date: 20110228
  Receipt Date: 20101026
  Transmission Date: 20110831
  Serious: No
  Sender: FDA-Public Use
  Company Number: A0886131A

PATIENT
  Sex: Female

DRUGS (2)
  1. LAMOTRIGINE [Suspect]
     Indication: BIPOLAR DISORDER
     Dosage: 200MG TWICE PER DAY
     Route: 048
     Dates: start: 20100101
  2. TOPAMAX [Concomitant]

REACTIONS (3)
  - NAUSEA [None]
  - DIZZINESS [None]
  - ACCIDENTAL OVERDOSE [None]
